FAERS Safety Report 7672593-2 (Version None)
Quarter: 2011Q3

REPORT INFORMATION
  Report Type: 
  Country: None (occurrence: None)
  Receive Date: 20110809
  Receipt Date: 20110728
  Transmission Date: 20111222
  Serious: Yes (Hospitalization, Other)
  Sender: FDA-Public Use
  Company Number: US-PFIZER INC-2011041919

PATIENT
  Sex: Male
  Weight: 97.51 kg

DRUGS (36)
  1. EFFEXOR XR [Suspect]
     Indication: SPINAL FRACTURE
     Dosage: 150 MG, 2X/DAY
     Route: 048
  2. EFFEXOR XR [Suspect]
     Indication: LOWER LIMB FRACTURE
     Dosage: 150 MG, 2X/DAY
     Route: 048
  3. EFFEXOR XR [Suspect]
     Indication: DEPRESSION
  4. LIPITOR [Suspect]
     Indication: ANXIETY
  5. PROTONIX [Suspect]
     Indication: HEAD DISCOMFORT
     Dosage: 40 MG, 1X/DAY
     Route: 048
  6. PROTONIX [Suspect]
     Indication: NERVE INJURY
  7. EFFEXOR XR [Suspect]
     Indication: NERVE INJURY
  8. LIPITOR [Suspect]
     Indication: HEAD DISCOMFORT
     Dosage: 80 MG, 2X/DAY
     Route: 048
  9. PROTONIX [Suspect]
     Indication: LOWER LIMB FRACTURE
  10. NORVASC [Suspect]
     Indication: HEAD DISCOMFORT
     Dosage: 10 MG, DAILY
     Route: 048
  11. WARFARIN SODIUM [Suspect]
     Indication: HEAD DISCOMFORT
     Dosage: 11.25 MG DAILY
  12. WARFARIN SODIUM [Suspect]
     Indication: LOWER LIMB FRACTURE
     Dosage: 7.5 MG DAILY
  13. LYRICA [Suspect]
     Indication: SPINAL FRACTURE
     Dosage: 100 MG, 3X/DAY
  14. EFFEXOR XR [Suspect]
     Indication: ANXIETY
  15. NORVASC [Suspect]
     Indication: ANXIETY
  16. NORVASC [Suspect]
     Indication: NERVE INJURY
  17. LYRICA [Suspect]
     Indication: HEAD DISCOMFORT
     Dosage: 50 MG, 2X/DAY
  18. LYRICA [Suspect]
     Indication: LOWER LIMB FRACTURE
     Dosage: 150 MG DAILY
     Route: 048
  19. PROTONIX [Suspect]
     Indication: SPINAL FRACTURE
  20. PROTONIX [Suspect]
     Indication: DEPRESSION
  21. NORVASC [Suspect]
     Indication: LOWER LIMB FRACTURE
  22. WARFARIN SODIUM [Suspect]
     Dosage: 5 MG DAILY
  23. LYRICA [Suspect]
     Indication: DEPRESSION
  24. NORVASC [Suspect]
     Indication: DEPRESSION
  25. LYRICA [Suspect]
     Indication: ANXIETY
  26. LIPITOR [Suspect]
     Indication: LOWER LIMB FRACTURE
     Dosage: 40 MG, DAILY
     Route: 048
  27. NORVASC [Suspect]
     Indication: SPINAL FRACTURE
  28. WARFARIN SODIUM [Suspect]
     Indication: SPINAL FRACTURE
     Dosage: 10 MG DAILY
  29. LYRICA [Suspect]
     Indication: NERVE INJURY
  30. EFFEXOR XR [Suspect]
     Indication: HEAD DISCOMFORT
     Dosage: 75 MG, 3X/DAY
     Route: 048
  31. LIPITOR [Suspect]
     Indication: NERVE INJURY
  32. LIPITOR [Suspect]
     Indication: DEPRESSION
  33. PROTONIX [Suspect]
     Indication: ANXIETY
  34. TRICOR [Concomitant]
     Indication: BLOOD CHOLESTEROL INCREASED
     Dosage: 145 MG, 1X/DAY
  35. TOPROL-XL [Concomitant]
     Indication: BLOOD PRESSURE INCREASED
     Dosage: 50 MG, 2X/DAY
  36. LIPITOR [Suspect]
     Indication: SPINAL FRACTURE
     Dosage: 40 MG, 2X/DAY

REACTIONS (6)
  - RENAL DISORDER [None]
  - OEDEMA PERIPHERAL [None]
  - FUNCTIONAL GASTROINTESTINAL DISORDER [None]
  - GAIT DISTURBANCE [None]
  - THROMBOSIS [None]
  - HAEMORRHOIDAL HAEMORRHAGE [None]
